FAERS Safety Report 8507287-4 (Version None)
Quarter: 2012Q3

REPORT INFORMATION
  Report Type: 
  Country: None (occurrence: None)
  Receive Date: 20120712
  Receipt Date: 20120705
  Transmission Date: 20120928
  Serious: Yes (Hospitalization)
  Sender: FDA-Public Use
  Company Number: JP-ABBOTT-12P-087-0953368-00

PATIENT
  Age: 50 Year
  Sex: Male
  Weight: 52 kg

DRUGS (5)
  1. ABACAVIR [Interacting]
     Indication: HIV INFECTION
     Dates: start: 20081101
  2. LAMIVUDINE [Interacting]
     Indication: HIV INFECTION
     Dates: start: 20050501
  3. TENOFOVIR DISOPROXIL FUMARATE [Interacting]
     Indication: HIV INFECTION
     Dates: start: 20050701, end: 20081101
  4. ATAZANAVIR [Interacting]
     Indication: HIV INFECTION
     Dates: start: 20050701
  5. RITONAVIR [Suspect]
     Indication: HIV INFECTION
     Dates: start: 20050701

REACTIONS (2)
  - DRUG INTERACTION [None]
  - TUBULOINTERSTITIAL NEPHRITIS [None]
